FAERS Safety Report 9685657 (Version 1)
Quarter: 2013Q4

REPORT INFORMATION
  Report Type: Spontaneous
  Country: US (occurrence: US)
  Receive Date: 20131113
  Receipt Date: 20131113
  Transmission Date: 20140711
  Serious: No
  Sender: FDA-Public Use
  Company Number: US-GLAXOSMITHKLINE-A1040663A

PATIENT
  Age: 70 Year
  Sex: Male
  Weight: 100 kg

DRUGS (9)
  1. CARVEDILOL [Suspect]
     Indication: HYPERTENSION
     Dosage: 25MG TWICE PER DAY
     Route: 048
  2. VIAGRA [Suspect]
     Indication: ERECTILE DYSFUNCTION
     Dosage: 100MG AS REQUIRED
     Route: 048
  3. ALLOPURINOL [Suspect]
     Indication: GOUT
     Dosage: 100MG THREE TIMES PER DAY
     Route: 048
  4. MONTELUKAST SODIUM [Suspect]
     Indication: RESPIRATORY DISORDER
     Dosage: 10MGD PER DAY
     Route: 065
  5. METFORMIN [Suspect]
     Indication: DIABETES MELLITUS
     Dosage: 100MG TWICE PER DAY
     Route: 065
  6. LISINOPRIL [Suspect]
     Indication: HYPERTENSION
     Dosage: 40MGD PER DAY
     Route: 065
  7. POTASSIUM [Suspect]
     Indication: HYPERTENSION
     Dosage: 20MEQ PER DAY
     Route: 048
  8. FUROSEMIDE [Suspect]
     Indication: HYPERTENSION
     Dosage: 40MGD PER DAY
     Route: 048
     Dates: start: 2013
  9. HYDRALAZINE [Suspect]
     Indication: HYPERTENSION
     Dosage: 50MG THREE TIMES PER DAY
     Route: 048

REACTIONS (3)
  - Drug interaction [Unknown]
  - Drug ineffective [Unknown]
  - Therapeutic response decreased [Unknown]
